FAERS Safety Report 6987844-7 (Version None)
Quarter: 2010Q3

REPORT INFORMATION
  Report Type: 
  Country: None (occurrence: None)
  Receive Date: 20100916
  Receipt Date: 20100914
  Transmission Date: 20110219
  Serious: Yes (Hospitalization, Disabling)
  Sender: FDA-Public Use
  Company Number: JP-SP-2006-02883

PATIENT
  Sex: Male

DRUGS (2)
  1. IMMUCYST [Suspect]
     Indication: BLADDER TRANSITIONAL CELL CARCINOMA STAGE I
     Route: 043
     Dates: start: 20060628, end: 20060727
  2. AMLODIPINE BESYLATE [Concomitant]

REACTIONS (7)
  - ANAL FISTULA [None]
  - BLADDER IRRITATION [None]
  - CYSTITIS NONINFECTIVE [None]
  - PROSTATIC ABSCESS [None]
  - PROSTATITIS [None]
  - PYREXIA [None]
  - PYURIA [None]
